FAERS Safety Report 13953770 (Version 2)
Quarter: 2017Q3

REPORT INFORMATION
  Report Type: Spontaneous
  Country: CA (occurrence: CA)
  Receive Date: 20170911
  Receipt Date: 20170915
  Transmission Date: 20171128
  Serious: Yes (Hospitalization, Other)
  Sender: FDA-Public Use
  Company Number: CA-ASTRAZENECA-2017SE91306

PATIENT
  Sex: Male

DRUGS (1)
  1. FORXIGA [Suspect]
     Active Substance: DAPAGLIFLOZIN
     Route: 048
     Dates: start: 2015, end: 20170905

REACTIONS (5)
  - Dysarthria [Recovered/Resolved]
  - Atrial fibrillation [Unknown]
  - Asthenia [Recovering/Resolving]
  - Dizziness [Recovered/Resolved]
  - Cerebrovascular accident [Unknown]
